FAERS Safety Report 5289370-2 (Version None)
Quarter: 2007Q2

REPORT INFORMATION
  Report Type: 
  Country: None (occurrence: None)
  Receive Date: 20070404
  Receipt Date: 20070404
  Transmission Date: 20071010
  Serious: Yes (Other)
  Sender: FDA-Public Use
  Company Number: None

PATIENT
  Age: 43 Year
  Sex: Female
  Weight: 70.7611 kg

DRUGS (2)
  1. ISOVUE-300 [Suspect]
     Dosage: 120 ML IV X1
     Route: 042
     Dates: start: 20070306
  2. METFORMIN HCL [Concomitant]

REACTIONS (2)
  - THROAT TIGHTNESS [None]
  - URTICARIA [None]
